FAERS Safety Report 7061233-1 (Version None)
Quarter: 2010Q4

REPORT INFORMATION
  Report Type: 
  Country: None (occurrence: None)
  Receive Date: 20101026
  Receipt Date: 20101019
  Transmission Date: 20110411
  Serious: Yes (Other)
  Sender: FDA-Public Use
  Company Number: US-PFIZER INC-2010047833

PATIENT
  Sex: Female
  Weight: 73 kg

DRUGS (4)
  1. NARDIL [Suspect]
     Indication: DEPRESSION
     Dosage: 15 MG, 2X/DAY
     Route: 048
  2. NARDIL [Suspect]
     Indication: ANXIETY
  3. XYZAL [Suspect]
     Indication: HYPERSENSITIVITY
     Dosage: 2.5 MG, DAILY
     Route: 048
  4. MULTI-VITAMINS [Concomitant]
     Dosage: UNK

REACTIONS (3)
  - HYPERTENSION [None]
  - NAUSEA [None]
  - SINUS DISORDER [None]
